FAERS Safety Report 25341532 (Version 1)
Quarter: 2025Q2

REPORT INFORMATION
  Report Type: Spontaneous
  Country: TW (occurrence: TW)
  Receive Date: 20250521
  Receipt Date: 20250521
  Transmission Date: 20250716
  Serious: Yes (Life-Threatening, Other)
  Sender: FRESENIUS KABI
  Company Number: TW-FreseniusKabi-FK202507104

PATIENT
  Age: 48 Year
  Sex: Male
  Weight: 45 kg

DRUGS (16)
  1. CARBOPLATIN [Suspect]
     Active Substance: CARBOPLATIN
     Indication: Squamous cell carcinoma
     Route: 041
     Dates: start: 20250218, end: 20250218
  2. CARBOPLATIN [Suspect]
     Active Substance: CARBOPLATIN
     Dates: start: 20230831, end: 20240430
  3. CARBOPLATIN [Suspect]
     Active Substance: CARBOPLATIN
     Dates: start: 20240601, end: 20240620
  4. CARBOPLATIN [Suspect]
     Active Substance: CARBOPLATIN
     Dates: start: 20241211, end: 20250125
  5. DOCETAXEL [Concomitant]
     Active Substance: DOCETAXEL
     Indication: Squamous cell carcinoma
     Dates: start: 20230831, end: 20240430
  6. DOCETAXEL [Concomitant]
     Active Substance: DOCETAXEL
     Dates: start: 20241211, end: 20250125
  7. FLUOROURACIL [Concomitant]
     Active Substance: FLUOROURACIL
     Indication: Squamous cell carcinoma
     Dates: start: 20230831, end: 20240430
  8. FLUOROURACIL [Concomitant]
     Active Substance: FLUOROURACIL
     Dates: start: 20240601, end: 20240620
  9. FLUOROURACIL [Concomitant]
     Active Substance: FLUOROURACIL
     Dates: start: 20241211, end: 20250125
  10. FLUOROURACIL [Concomitant]
     Active Substance: FLUOROURACIL
     Dates: start: 20250218
  11. NIVOLUMAB [Concomitant]
     Active Substance: NIVOLUMAB
     Indication: Squamous cell carcinoma
     Dates: start: 20240601, end: 20240620
  12. NIVOLUMAB [Concomitant]
     Active Substance: NIVOLUMAB
     Dates: start: 20240718, end: 20241120
  13. NIVOLUMAB [Concomitant]
     Active Substance: NIVOLUMAB
     Dates: start: 20241211, end: 20250125
  14. CETUXIMAB [Concomitant]
     Active Substance: CETUXIMAB
     Indication: Squamous cell carcinoma
     Dates: start: 20230831, end: 20240430
  15. CETUXIMAB [Concomitant]
     Active Substance: CETUXIMAB
     Dates: start: 20240601, end: 20240620
  16. CETUXIMAB [Concomitant]
     Active Substance: CETUXIMAB
     Dates: start: 20240718, end: 20241120

REACTIONS (1)
  - Anaphylactic shock [Recovered/Resolved]

NARRATIVE: CASE EVENT DATE: 20250218
